FAERS Safety Report 18425924 (Version 1)
Quarter: 2020Q4

REPORT INFORMATION
  Report Type: Spontaneous
  Country: US (occurrence: US)
  Receive Date: 20201026
  Receipt Date: 20201026
  Transmission Date: 20210114
  Serious: No
  Sender: FDA-Public Use
  Company Number: None

PATIENT
  Age: 70 Year
  Sex: Male

DRUGS (1)
  1. HUMIRA [Suspect]
     Active Substance: ADALIMUMAB
     Indication: PSORIASIS
     Route: 058
     Dates: start: 20180314

REACTIONS (4)
  - Needle issue [None]
  - Device failure [None]
  - Psoriasis [None]
  - Product dose omission issue [None]

NARRATIVE: CASE EVENT DATE: 20200926
